FAERS Safety Report 20501350 (Version 1)
Quarter: 2022Q1

REPORT INFORMATION
  Report Type: Report from Study
  Country: US (occurrence: US)
  Receive Date: 20220222
  Receipt Date: 20220222
  Transmission Date: 20220423
  Serious: Yes (Death)
  Sender: FDA-Public Use
  Company Number: US-PFIZER INC-202200120470

PATIENT
  Age: 58 Year
  Sex: Female

DRUGS (3)
  1. GABAPENTIN [Interacting]
     Active Substance: GABAPENTIN
     Dosage: UNK
  2. HYDROXYZINE PAMOATE [Interacting]
     Active Substance: HYDROXYZINE PAMOATE
     Dosage: UNK
  3. METHADONE [Interacting]
     Active Substance: METHADONE HYDROCHLORIDE
     Dosage: UNK

REACTIONS (2)
  - Toxicity to various agents [Fatal]
  - Drug interaction [Fatal]
